FAERS Safety Report 8436072-7 (Version None)
Quarter: 2012Q2

REPORT INFORMATION
  Report Type: 
  Country: None (occurrence: None)
  Receive Date: 20120614
  Receipt Date: 20120314
  Transmission Date: 20120825
  Serious: No
  Sender: FDA-Public Use
  Company Number: US-ASTRAZENECA-2012SE17732

PATIENT
  Age: 64 Year
  Sex: Male
  Weight: 99.8 kg

DRUGS (8)
  1. FIRMAGON [Suspect]
     Dosage: TWO INJECTION (120 MG EACH)
     Route: 058
     Dates: start: 20120120
  2. FIRMAGON [Suspect]
     Dosage: TWO INJECTIONS(120 MG EACH)
     Route: 058
  3. FIRMAGON [Suspect]
     Route: 058
  4. ZOLADEX [Suspect]
     Route: 058
     Dates: start: 20110101
  5. FIRMAGON [Suspect]
     Indication: PROSTATE CANCER
     Dosage: LOADIGN DOSE
     Route: 058
     Dates: start: 20101209
  6. FIRMAGON [Suspect]
     Dosage: LAST MAINTENANCE DOSE
     Route: 058
     Dates: start: 20110601
  7. FIRMAGON [Suspect]
     Route: 058
  8. LUPRON [Concomitant]

REACTIONS (8)
  - HEART RATE INCREASED [None]
  - DRUG HYPERSENSITIVITY [None]
  - DYSPNOEA [None]
  - PROSTATIC SPECIFIC ANTIGEN DECREASED [None]
  - CHEST PAIN [None]
  - SENSATION OF HEAVINESS [None]
  - PALPITATIONS [None]
  - CHEST DISCOMFORT [None]
